FAERS Safety Report 9524517 (Version 1)
Quarter: 2013Q3

REPORT INFORMATION
  Report Type: Spontaneous
  Country: US (occurrence: US)
  Receive Date: 20130916
  Receipt Date: 20130916
  Transmission Date: 20140515
  Serious: No
  Sender: FDA-Public Use
  Company Number: US-PFIZER INC-2013265657

PATIENT
  Age: 60 Year
  Sex: Female
  Weight: 86.62 kg

DRUGS (2)
  1. LYRICA [Suspect]
     Indication: NEUROPATHY PERIPHERAL
     Dosage: 150 MG, 2X/DAY
     Dates: start: 201211
  2. LYRICA [Suspect]
     Indication: SPINAL COLUMN STENOSIS

REACTIONS (1)
  - Headache [Recovered/Resolved]
